FAERS Safety Report 5311213-9 (Version None)
Quarter: 2007Q2

REPORT INFORMATION
  Report Type: 
  Country: None (occurrence: None)
  Receive Date: 20070423
  Receipt Date: 20070405
  Transmission Date: 20071010
  Serious: Yes (Other)
  Sender: FDA-Public Use
  Company Number: 07-000793

PATIENT
  Age: 64 Year
  Sex: Female

DRUGS (2)
  1. TACLONEX [Suspect]
     Indication: PSORIASIS
     Dosage: 1 APPLICATION QD, TOPICAL
     Route: 061
     Dates: start: 20070310, end: 20070401
  2. FOSAMAX [Concomitant]

REACTIONS (2)
  - DYSPNOEA [None]
  - PRODUCTIVE COUGH [None]
